FAERS Safety Report 5057236-9 (Version None)
Quarter: 2006Q3

REPORT INFORMATION
  Report Type: 
  Country: None (occurrence: None)
  Receive Date: 20060721
  Receipt Date: 20050622
  Transmission Date: 20061208
  Serious: No
  Sender: FDA-Public Use
  Company Number: US-GLAXOSMITHKLINE-A0563839A

PATIENT
  Age: 67 Year
  Sex: Female

DRUGS (6)
  1. AVANDIA [Suspect]
     Dosage: 4MG PER DAY
     Route: 048
  2. LIPITOR [Concomitant]
  3. VERAPAMIL [Concomitant]
     Route: 065
  4. PLAVIX [Concomitant]
  5. DIOVAN [Concomitant]
  6. GLYBURIDE [Concomitant]

REACTIONS (1)
  - OEDEMA PERIPHERAL [None]
